FAERS Safety Report 18851191 (Version 7)
Quarter: 2022Q1

REPORT INFORMATION
  Report Type: Report from Study
  Country: US (occurrence: US)
  Receive Date: 20210205
  Receipt Date: 20220127
  Transmission Date: 20220424
  Serious: Yes (Other)
  Sender: FDA-Public Use
  Company Number: NVSC2021US025344

PATIENT
  Sex: Female

DRUGS (2)
  1. MAYZENT [Suspect]
     Active Substance: SIPONIMOD
     Indication: Product used for unknown indication
     Dosage: 2 MG, QD (VIA MOUTH)
     Route: 048
  2. NEXIUM [Concomitant]
     Active Substance: ESOMEPRAZOLE MAGNESIUM
     Indication: Product used for unknown indication
     Dosage: UNK
     Route: 065

REACTIONS (12)
  - Seizure [Unknown]
  - Facial pain [Unknown]
  - Memory impairment [Unknown]
  - Malaise [Unknown]
  - Balance disorder [Unknown]
  - Electric shock sensation [Unknown]
  - Fall [Unknown]
  - Amnesia [Unknown]
  - Fatigue [Unknown]
  - Gait disturbance [Unknown]
  - Vomiting [Unknown]
  - Drug ineffective [Unknown]
